FAERS Safety Report 7607239 (Version 3)
Quarter: 2013Q4

REPORT INFORMATION
  Report Type: Report from Study
  Country: US (occurrence: US)
  Receive Date: 20100927
  Receipt Date: 20131028
  Transmission Date: 20140711
  Serious: Yes (Hospitalization, Other)
  Sender: FDA-Public Use
  Company Number: US-BAYER-201031986NA

PATIENT
  Age: 79 Year
  Sex: Female
  Weight: 60.91 kg

DRUGS (19)
  1. SORAFENIB (RAF KINASE INHIBITOR) [Suspect]
     Indication: MALIGNANT MELANOMA
     Dosage: AS USED DOSE: 200-400 MG
     Route: 048
     Dates: start: 20030303, end: 20100823
  2. SORAFENIB (RAF KINASE INHIBITOR) [Suspect]
     Indication: MALIGNANT MELANOMA
     Dosage: AS USED DOSE: 200-400 MG
     Route: 048
     Dates: start: 20100616, end: 20100816
  3. SORAFENIB (RAF KINASE INHIBITOR) [Suspect]
     Indication: MALIGNANT MELANOMA
     Route: 048
     Dates: start: 20100817, end: 20100823
  4. AMIODARONE [Concomitant]
     Dosage: 200 MG (DAILY DOSE), QD, ORAL
     Route: 048
     Dates: start: 20100728
  5. DILTIAZEM [Concomitant]
     Indication: HYPERTENSION
     Route: 048
     Dates: start: 20100719
  6. DILTIAZEM [Concomitant]
     Indication: HYPERTENSION
     Dosage: 60 MG (DAILY DOSE), , ORAL
     Route: 048
  7. GABAPENTIN [Concomitant]
     Dosage: (ONLY TAKES ONCE DAILY)
     Route: 048
     Dates: start: 20100728
  8. LIPITOR [Concomitant]
     Indication: HYPERCHOLESTEROLAEMIA
     Dosage: (1/2 TABLET DAILY)
     Route: 048
     Dates: start: 20100128
  9. LIPITOR [Concomitant]
     Indication: HYPERCHOLESTEROLAEMIA
     Dosage: 20 MG (DAILY DOSE), , ORAL
     Route: 048
  10. LOPERAMIDE [Concomitant]
     Route: 048
  11. BENICAR [Concomitant]
     Indication: HYPERTENSION
     Route: 048
     Dates: start: 20100728
  12. BENICAR [Concomitant]
     Indication: HYPERTENSION
     Dosage: 40 MG (DAILY DOSE), , ORAL
     Route: 048
  13. SYNTHROID [Concomitant]
     Route: 048
     Dates: start: 20090522
  14. SYNTHROID [Concomitant]
     Route: 048
  15. COUMADIN [Concomitant]
     Indication: ATRIAL FIBRILLATION
     Dosage: TAKE 1-2 TABLEST DAILY AS DIRECTED
     Route: 048
     Dates: start: 20100719
  16. COUMADIN [Concomitant]
     Indication: ATRIAL FIBRILLATION
     Dosage: ON SUNDAY AND WEDNESDAY
     Route: 048
     Dates: start: 20100823
  17. AMOXICILLIN [Concomitant]
     Dosage: 4 PILLS ONE HOUR BEFORE DENTAL WORK
     Route: 048
  18. AMIODARONE HYDROCHLORIDE [Concomitant]
     Indication: ATRIAL FIBRILLATION
     Dosage: AS USED DOSE: 200-400 MG
     Route: 048
  19. OMEGA-3 TRIGLYCERIDES [Concomitant]
     Route: 048
     Dates: start: 20090708

REACTIONS (5)
  - Breast cancer [Recovered/Resolved]
  - Urosepsis [Recovered/Resolved]
  - Clostridium difficile infection [Recovered/Resolved]
  - Dehydration [Recovered/Resolved]
  - Basal ganglia infarction [Recovered/Resolved]
